FAERS Safety Report 5949932-3 (Version None)
Quarter: 2008Q4

REPORT INFORMATION
  Report Type: 
  Country: None (occurrence: None)
  Receive Date: 20081112
  Receipt Date: 20081105
  Transmission Date: 20090506
  Serious: Yes (Other)
  Sender: FDA-Public Use
  Company Number: US-BAYER-200835183NA

PATIENT
  Age: 41 Year
  Sex: Female
  Weight: 49 kg

DRUGS (4)
  1. YAZ [Suspect]
     Indication: PREMENSTRUAL SYNDROME
     Route: 048
     Dates: start: 20080601
  2. XANAX [Concomitant]
     Indication: STRESS
  3. ATENOLOL [Concomitant]
     Indication: HYPERTENSION
     Route: 048
  4. HYDROCHLOROTHIAZIDE [Concomitant]
     Indication: HYPERTENSION
     Route: 048

REACTIONS (3)
  - ANGER [None]
  - IRRITABILITY [None]
  - PREMENSTRUAL SYNDROME [None]
